FAERS Safety Report 12189513 (Version 1)
Quarter: 2016Q1

REPORT INFORMATION
  Report Type: Spontaneous
  Country: FR (occurrence: FR)
  Receive Date: 20160318
  Receipt Date: 20160318
  Transmission Date: 20160526
  Serious: Yes (Hospitalization)
  Sender: FDA-Public Use
  Company Number: FR-AMGEN-FRASP2016032545

PATIENT
  Age: 36 Year
  Sex: Female

DRUGS (3)
  1. RITUXIMAB [Concomitant]
     Active Substance: RITUXIMAB
  2. SOTALEX [Concomitant]
     Active Substance: SOTALOL
     Indication: PALPITATIONS
     Dosage: 80 MG, BID
     Route: 048
  3. NPLATE [Suspect]
     Active Substance: ROMIPLOSTIM
     Indication: IMMUNE THROMBOCYTOPENIC PURPURA
     Dosage: UNK
     Route: 058
     Dates: start: 20091202, end: 20130622

REACTIONS (2)
  - Pruritus [Not Recovered/Not Resolved]
  - Xerosis [Not Recovered/Not Resolved]
